FAERS Safety Report 5331077-7 (Version None)
Quarter: 2007Q2

REPORT INFORMATION
  Report Type: 
  Country: None (occurrence: None)
  Receive Date: 20070516
  Receipt Date: 20070504
  Transmission Date: 20071010
  Serious: Yes (Other)
  Sender: FDA-Public Use
  Company Number: DSM-2007-00150

PATIENT
  Age: 55 Year
  Sex: Male

DRUGS (1)
  1. OMESAR (OLMESARTAN MEDOXOMIL) (20 MILLIGRAM, TABLET) (OLMESARTAN MEDOX [Suspect]
     Indication: HYPERTENSION
     Dosage: 20 MG (20 MG, 1 IN 1 D), ORAL
     Route: 048
     Dates: start: 20070201

REACTIONS (3)
  - ARTHRALGIA [None]
  - CONDITION AGGRAVATED [None]
  - OSTEOARTHRITIS [None]
